FAERS Safety Report 10280252 (Version 1)
Quarter: 2014Q3

REPORT INFORMATION
  Report Type: Spontaneous
  Country: JP (occurrence: JP)
  Receive Date: 20140707
  Receipt Date: 20140707
  Transmission Date: 20150326
  Serious: Yes (Death, Other)
  Sender: FDA-Public Use
  Company Number: JP-MERCK-1407JPN002367

PATIENT
  Age: 70 Year
  Sex: Male

DRUGS (5)
  1. AMPICILLIN AND SULBACTAM [Concomitant]
     Active Substance: AMPICILLIN SODIUM\SULBACTAM SODIUM
     Indication: PNEUMONIA KLEBSIELLA
     Dosage: 1.5 G, Q12H
     Route: 042
  2. MEROPENEM. [Concomitant]
     Active Substance: MEROPENEM
     Indication: PNEUMONIA ASPIRATION
     Dosage: 1 G, TID (EVERY 8 HR)
     Route: 042
  3. AMIKACIN [Concomitant]
     Active Substance: AMIKACIN
     Indication: PNEUMONIA ASPIRATION
     Dosage: 400 MG, QD
     Route: 042
  4. IMIPENEM AND CILASTATIN [Suspect]
     Active Substance: CILASTATIN SODIUM\IMIPENEM
     Indication: PNEUMONIA ASPIRATION
     Dosage: 0.5 G, TID (EVERY 8 HR)
     Route: 042
  5. POLYMYXIN B SULFATE [Concomitant]
     Active Substance: POLYMYXIN B SULFATE
     Indication: HAEMOPERFUSION

REACTIONS (2)
  - Respiratory failure [Fatal]
  - Drug ineffective [Fatal]
